FAERS Safety Report 11410262 (Version 2)
Quarter: 2015Q3

REPORT INFORMATION
  Report Type: Spontaneous
  Country: CN (occurrence: CN)
  Receive Date: 20150824
  Receipt Date: 20150824
  Transmission Date: 20151125
  Serious: Yes (Hospitalization)
  Sender: FDA-Public Use
  Company Number: PHHY2015CN098914

PATIENT
  Age: 94 Year
  Sex: Male

DRUGS (3)
  1. LEVOFLOXACIN. [Concomitant]
     Active Substance: LEVOFLOXACIN
     Indication: PULMONARY TUBERCULOSIS
     Dosage: 0.2 UNK, QD
     Route: 065
     Dates: end: 20051009
  2. ETHAMBUTOL [Concomitant]
     Active Substance: ETHAMBUTOL HYDROCHLORIDE
     Indication: PULMONARY TUBERCULOSIS
     Dosage: 0.5 UNK, QD
     Route: 065
     Dates: end: 20051009
  3. ISONIAZID. [Suspect]
     Active Substance: ISONIAZID
     Indication: PULMONARY TUBERCULOSIS
     Dosage: 0.2 UNK, QD
     Route: 065
     Dates: end: 20051009

REACTIONS (4)
  - Pyrexia [Recovered/Resolved]
  - Haemoptysis [Recovered/Resolved]
  - Aplasia pure red cell [Recovered/Resolved]
  - Asthenia [Recovered/Resolved]
